FAERS Safety Report 16107060 (Version 2)
Quarter: 2019Q2

REPORT INFORMATION
  Report Type: Spontaneous
  Country: CA (occurrence: US)
  Receive Date: 20190322
  Receipt Date: 20190503
  Transmission Date: 20190711
  Serious: No
  Sender: FDA-Public Use
  Company Number: CA-BAYER-2019-056053

PATIENT
  Age: 44 Year
  Sex: Female
  Weight: 52 kg

DRUGS (1)
  1. ALKA-SELTZER GOLD [Suspect]
     Active Substance: ANHYDROUS CITRIC ACID\POTASSIUM BICARBONATE\SODIUM BICARBONATE
     Route: 048
     Dates: start: 201901

REACTIONS (3)
  - Abdominal discomfort [None]
  - Hypersensitivity [Unknown]
  - Feeling hot [None]

NARRATIVE: CASE EVENT DATE: 201901
